FAERS Safety Report 10418433 (Version 4)
Quarter: 2014Q4

REPORT INFORMATION
  Report Type: Spontaneous
  Country: US (occurrence: US)
  Receive Date: 20140829
  Receipt Date: 20141202
  Transmission Date: 20150528
  Serious: Yes (Hospitalization, Other)
  Sender: FDA-Public Use
  Company Number: US-GILEAD-2014-0113371

PATIENT
  Age: 48 Year
  Sex: Female

DRUGS (1)
  1. LETAIRIS [Suspect]
     Active Substance: AMBRISENTAN
     Indication: PRODUCT USED FOR UNKNOWN INDICATION
     Dosage: 10 MG, QD
     Route: 065
     Dates: start: 20140224

REACTIONS (4)
  - Vulval cancer [Unknown]
  - Surgery [Unknown]
  - Neoplasm malignant [Unknown]
  - Anaemia [Unknown]
